FAERS Safety Report 9192236 (Version 1)
Quarter: 2013Q1

REPORT INFORMATION
  Report Type: Spontaneous
  Country: US (occurrence: US)
  Receive Date: 20130327
  Receipt Date: 20130327
  Transmission Date: 20140127
  Serious: Yes (Other)
  Sender: FDA-Public Use
  Company Number: US-BAYER-2013-035480

PATIENT
  Age: 42 Year
  Sex: Female
  Weight: 102.49 kg

DRUGS (6)
  1. YAZ [Suspect]
  2. RITALIN [Concomitant]
     Dosage: UNK
     Dates: start: 20090506
  3. GEODON [Concomitant]
     Dosage: UNK
     Dates: start: 20090506
  4. CELEBREX [Concomitant]
     Dosage: UNK
     Dates: start: 20030903
  5. LITHIUM [Concomitant]
     Dosage: UNK
     Dates: start: 20090803
  6. ALEVE [Concomitant]

REACTIONS (2)
  - Deep vein thrombosis [None]
  - Thrombophlebitis superficial [None]
